FAERS Safety Report 21622634 (Version 1)
Quarter: 2022Q4

REPORT INFORMATION
  Report Type: Spontaneous
  Country: US (occurrence: None)
  Receive Date: 20221120
  Receipt Date: 20221120
  Transmission Date: 20230113
  Serious: Yes (Life-Threatening, Hospitalization, Disabling)
  Sender: FDA-Public Use
  Company Number: None

PATIENT
  Age: 46 Year
  Sex: Female
  Weight: 116.55 kg

DRUGS (1)
  1. OZEMPIC [Suspect]
     Active Substance: SEMAGLUTIDE
     Indication: Weight decreased
     Dosage: OTHER QUANTITY : 1 INJECTION(S);?OTHER FREQUENCY : ONCE PER WEEK;?
     Route: 058
     Dates: start: 20211110, end: 20220505

REACTIONS (6)
  - Decreased appetite [None]
  - Dehydration [None]
  - COVID-19 [None]
  - Papillary thyroid cancer [None]
  - Thyroidectomy [None]
  - Lymphadenopathy [None]

NARRATIVE: CASE EVENT DATE: 20220831
